FAERS Safety Report 11665486 (Version 1)
Quarter: 2015Q4

REPORT INFORMATION
  Report Type: Spontaneous
  Country: US (occurrence: None)
  Receive Date: 20151026
  Receipt Date: 20151026
  Transmission Date: 20160304
  Serious: No
  Sender: FDA-Public Use
  Company Number: None

PATIENT
  Age: 75 Year
  Sex: Male
  Weight: 108.86 kg

DRUGS (17)
  1. PROSCAR [Concomitant]
     Active Substance: FINASTERIDE
  2. MULTIVITAMIN [Concomitant]
     Active Substance: VITAMINS
  3. LABELETOL200 [Concomitant]
  4. ALLEGRA [Concomitant]
     Active Substance: FEXOFENADINE HYDROCHLORIDE
  5. SYMBICORT [Suspect]
     Active Substance: BUDESONIDE\FORMOTEROL FUMARATE DIHYDRATE
     Indication: ASTHMA
     Route: 055
     Dates: start: 20151022, end: 20151025
  6. LOSARTAN. [Concomitant]
     Active Substance: LOSARTAN
  7. LASIX [Concomitant]
     Active Substance: FUROSEMIDE
  8. TAMSULOSIN [Concomitant]
     Active Substance: TAMSULOSIN
  9. BIPAP [Concomitant]
     Active Substance: DEVICE
  10. ALBUTEROL. [Concomitant]
     Active Substance: ALBUTEROL
  11. DILTIAZEM [Concomitant]
     Active Substance: DILTIAZEM
  12. MAXZIDE [Concomitant]
     Active Substance: HYDROCHLOROTHIAZIDE\TRIAMTERENE
  13. HYDRALAZINE [Concomitant]
     Active Substance: HYDRALAZINE HYDROCHLORIDE
  14. XERALTOL [Concomitant]
  15. VITAMIN E [Concomitant]
     Active Substance: .ALPHA.-TOCOPHEROL
  16. SPIVIRA [Concomitant]
  17. NASOCORT [Concomitant]
     Active Substance: BUDESONIDE

REACTIONS (2)
  - Incorrect dose administered by device [None]
  - Device difficult to use [None]

NARRATIVE: CASE EVENT DATE: 20151025
